FAERS Safety Report 7403391-2 (Version None)
Quarter: 2011Q2

REPORT INFORMATION
  Report Type: 
  Country: None (occurrence: None)
  Receive Date: 20110408
  Receipt Date: 20110404
  Transmission Date: 20111010
  Serious: Yes (Hospitalization)
  Sender: FDA-Public Use
  Company Number: A0898973A

PATIENT
  Age: 57 Year
  Sex: Female

DRUGS (1)
  1. AVANDIA [Suspect]
     Dosage: 4MG PER DAY
     Route: 048
     Dates: start: 20040102, end: 20040302

REACTIONS (4)
  - CORONARY ARTERY BYPASS [None]
  - ARTERIOSCLEROSIS [None]
  - ACUTE CORONARY SYNDROME [None]
  - RENAL FAILURE ACUTE [None]
